FAERS Safety Report 18507618 (Version 2)
Quarter: 2020Q4

REPORT INFORMATION
  Report Type: Spontaneous
  Country: GR (occurrence: GR)
  Receive Date: 20201116
  Receipt Date: 20201203
  Transmission Date: 20210114
  Serious: Yes (Hospitalization, Other)
  Sender: FDA-Public Use
  Company Number: GR-B.I. PHARMACEUTICALS,INC./RIDGEFIELD-2020-BI-060829

PATIENT
  Age: 65 Year
  Sex: Female

DRUGS (9)
  1. CARVEDILOL. [Concomitant]
     Active Substance: CARVEDILOL
     Indication: PRODUCT USED FOR UNKNOWN INDICATION
     Route: 065
  2. FUROSEMIDE. [Concomitant]
     Active Substance: FUROSEMIDE
     Indication: PRODUCT USED FOR UNKNOWN INDICATION
     Route: 065
  3. ASA [Concomitant]
     Active Substance: ASPIRIN
     Indication: PRODUCT USED FOR UNKNOWN INDICATION
     Route: 065
  4. JARDIANCE [Suspect]
     Active Substance: EMPAGLIFLOZIN
     Indication: PRODUCT USED FOR UNKNOWN INDICATION
     Route: 065
     Dates: start: 201802
  5. PANTOPRAZOLE [Concomitant]
     Active Substance: PANTOPRAZOLE
     Indication: PRODUCT USED FOR UNKNOWN INDICATION
     Route: 065
  6. EPLERENONE. [Concomitant]
     Active Substance: EPLERENONE
     Indication: PRODUCT USED FOR UNKNOWN INDICATION
     Route: 065
  7. ATORVASTATIN [Concomitant]
     Active Substance: ATORVASTATIN
     Indication: PRODUCT USED FOR UNKNOWN INDICATION
     Route: 065
  8. FUROSEMIDE. [Concomitant]
     Active Substance: FUROSEMIDE
  9. SACUBITRIL;VALSARTAN [Concomitant]
     Active Substance: SACUBITRIL\VALSARTAN
     Indication: PRODUCT USED FOR UNKNOWN INDICATION
     Route: 065

REACTIONS (23)
  - Diaphragmatic hernia [Recovered/Resolved]
  - Fatigue [Recovered/Resolved]
  - Dyspnoea [Recovered/Resolved]
  - Weight decreased [Recovered/Resolved]
  - Tachycardia [Recovered/Resolved]
  - Atrial fibrillation [Recovered/Resolved]
  - Oedema peripheral [Recovered/Resolved]
  - Vomiting [Recovered/Resolved]
  - Ventricular tachycardia [Recovered/Resolved]
  - Back pain [Recovered/Resolved]
  - Oesophageal achalasia [Recovered/Resolved]
  - Palpitations [Recovered/Resolved]
  - Condition aggravated [Recovered/Resolved]
  - Dysphoria [Recovered/Resolved]
  - Selective eating disorder [Recovered/Resolved]
  - Weight decreased [Recovered/Resolved]
  - Epigastric discomfort [Recovered/Resolved]
  - Dysphoria [Recovered/Resolved]
  - Fatigue [Recovered/Resolved]
  - Fatigue [Recovered/Resolved]
  - Electrolyte imbalance [Recovered/Resolved]
  - Myocardial ischaemia [Recovered/Resolved]
  - Dyspnoea [Recovered/Resolved]

NARRATIVE: CASE EVENT DATE: 201805
